FAERS Safety Report 4828631-5 (Version None)
Quarter: 2005Q4

REPORT INFORMATION
  Report Type: 
  Country: None (occurrence: None)
  Receive Date: 20051115
  Receipt Date: 20051110
  Transmission Date: 20060501
  Serious: Yes (Death, Life-Threatening, Hospitalization)
  Sender: FDA-Public Use
  Company Number: PHBS2005BR16593

PATIENT
  Age: 47 Year
  Sex: Male

DRUGS (8)
  1. BROMOCRIPTINE MESYLATE [Suspect]
     Indication: PITUITARY TUMOUR BENIGN
     Dates: start: 19990101
  2. BROMOCRIPTINE MESYLATE [Suspect]
     Dosage: INCREASING DAILY DOSES
     Dates: start: 20000101
  3. BROMOCRIPTINE MESYLATE [Suspect]
     Dosage: 5 MG/DAY
  4. THYROXINE [Concomitant]
     Indication: HORMONE REPLACEMENT THERAPY
  5. PREDNISONE [Concomitant]
     Indication: HORMONE REPLACEMENT THERAPY
  6. TESTOSTERONE [Concomitant]
     Indication: HORMONE REPLACEMENT THERAPY
  7. VASOPRESSIN TANNATE [Concomitant]
     Indication: HORMONE REPLACEMENT THERAPY
  8. CARBEGOLINE [Concomitant]
     Dates: start: 20000501, end: 20000801

REACTIONS (17)
  - ABDOMINAL PAIN UPPER [None]
  - ANOXIC ENCEPHALOPATHY [None]
  - ARRHYTHMIA [None]
  - BACK PAIN [None]
  - BLOOD PROLACTIN INCREASED [None]
  - CARDIAC ARREST [None]
  - EXTENSOR PLANTAR RESPONSE [None]
  - INTERVERTEBRAL DISC PROTRUSION [None]
  - METASTASES TO MENINGES [None]
  - MYOCLONUS [None]
  - NAUSEA [None]
  - PAIN IN EXTREMITY [None]
  - PITUITARY CANCER METASTATIC [None]
  - PNEUMONIA [None]
  - RENAL FAILURE [None]
  - SPINAL DECOMPRESSION [None]
  - UNRESPONSIVE TO VERBAL STIMULI [None]
